FAERS Safety Report 22051772 (Version 2)
Quarter: 2023Q1

REPORT INFORMATION
  Report Type: Spontaneous
  Country: BG (occurrence: BG)
  Receive Date: 20230302
  Receipt Date: 20230302
  Transmission Date: 20230418
  Serious: Yes (Other)
  Sender: FDA-Public Use
  Company Number: BG-009507513-2302BGR008025

PATIENT
  Age: 77 Year
  Sex: Male

DRUGS (1)
  1. KEYTRUDA [Suspect]
     Active Substance: PEMBROLIZUMAB
     Indication: Metastatic malignant melanoma
     Dosage: 200 MILLIGRAM, Q3W
     Dates: start: 201902, end: 202203

REACTIONS (5)
  - Radiotherapy [Unknown]
  - Tumour pseudoprogression [Recovered/Resolved]
  - Bone swelling [Recovered/Resolved]
  - Scrotal oedema [Recovered/Resolved]
  - Penile oedema [Recovered/Resolved]

NARRATIVE: CASE EVENT DATE: 20190401
